FAERS Safety Report 7005795-9 (Version None)
Quarter: 2010Q3

REPORT INFORMATION
  Report Type: 
  Country: None (occurrence: None)
  Receive Date: 20100921
  Receipt Date: 20100909
  Transmission Date: 20110219
  Serious: Yes (Hospitalization, Other)
  Sender: FDA-Public Use
  Company Number: US-BRISTOL-MYERS SQUIBB COMPANY-15239171

PATIENT
  Age: 62 Year
  Sex: Male
  Weight: 136 kg

DRUGS (9)
  1. MDX-1105 [Suspect]
     Indication: MALIGNANT MELANOMA
     Dosage: 08FEB10-02JUN10(DOSES 7) 21APR10-05MAY10(DOSES 3) 16JUN10-28JUL10(DOSES 3)
     Dates: start: 20100208, end: 20100728
  2. PRAVACHOL [Suspect]
     Dates: start: 20080101, end: 20100812
  3. TRICOR [Suspect]
     Dates: start: 20090501, end: 20100812
  4. COREG [Suspect]
     Indication: CARDIAC FAILURE CONGESTIVE
     Dosage: 1 DF = 25 UNIT NOT MENTIONED
     Route: 048
     Dates: start: 20010615
  5. LISINOPRIL [Concomitant]
     Indication: CARDIAC FAILURE CONGESTIVE
     Dosage: 1 DF = 20 UNIT NOT MENTIONED
     Route: 048
     Dates: start: 20010615
  6. LASIX [Concomitant]
     Indication: CARDIAC FAILURE CONGESTIVE
     Dosage: 1 DF = 40 UNIT NOT MENTIONED
     Route: 048
     Dates: start: 20010615
  7. ALDACTONE [Concomitant]
     Indication: CARDIAC FAILURE CONGESTIVE
     Dosage: 1 DF= 25 UNIT NOT MENTIONED,FREQUENCY1E/OD
     Route: 048
     Dates: start: 20010615
  8. ACYCLOVIR [Concomitant]
     Indication: HERPES VIRUS INFECTION
     Dosage: 1 DF = 400 UNIT NOT MENTIONED
     Route: 048
     Dates: start: 19990615
  9. ALLOPURINOL [Concomitant]
     Indication: GOUT
     Dosage: 1 DF =300 UNIT NOT MENTIONED
     Route: 048
     Dates: start: 20010101

REACTIONS (2)
  - HEPATITIS C [None]
  - LIVER FUNCTION TEST ABNORMAL [None]
